FAERS Safety Report 5707670-6 (Version None)
Quarter: 2008Q2

REPORT INFORMATION
  Report Type: 
  Country: None (occurrence: None)
  Receive Date: 20080415
  Receipt Date: 20080406
  Transmission Date: 20081010
  Serious: Yes (Other)
  Sender: FDA-Public Use
  Company Number: 2008008732

PATIENT

DRUGS (1)
  1. BENADRYL [Suspect]
     Indication: HYPERSENSITIVITY
     Dosage: EVERYDAY, ALL DAY
     Dates: start: 20080101

REACTIONS (3)
  - DRUG DEPENDENCE [None]
  - EMOTIONAL DISTRESS [None]
  - RESPIRATORY DISORDER [None]
